FAERS Safety Report 7585548-3 (Version None)
Quarter: 2011Q2

REPORT INFORMATION
  Report Type: 
  Country: None (occurrence: None)
  Receive Date: 20110628
  Receipt Date: 20110628
  Transmission Date: 20111010
  Serious: Yes (Other)
  Sender: FDA-Public Use
  Company Number: None

PATIENT
  Age: 57 Year
  Sex: Female
  Weight: 54.4316 kg

DRUGS (1)
  1. LEVEMIR [Suspect]
     Indication: DIABETES MELLITUS
     Dosage: 21 UNITS AT BEDTIME SUB-Q
     Route: 058
     Dates: start: 20110201, end: 20110501

REACTIONS (5)
  - HYPERHIDROSIS [None]
  - HEART RATE INCREASED [None]
  - HEADACHE [None]
  - EYE PAIN [None]
  - VISION BLURRED [None]
